FAERS Safety Report 6656155-1 (Version None)
Quarter: 2010Q1

REPORT INFORMATION
  Report Type: 
  Country: None (occurrence: None)
  Receive Date: 20100329
  Receipt Date: 20100326
  Transmission Date: 20100710
  Serious: Yes (Life-Threatening, Other)
  Sender: FDA-Public Use
  Company Number: PHHY2010JP10855

PATIENT
  Age: 18 Year
  Sex: Female

DRUGS (1)
  1. TEGRETOL [Suspect]
     Indication: PSYCHOTIC DISORDER
     Dosage: UNK
     Route: 048

REACTIONS (1)
  - SUICIDE ATTEMPT [None]
